FAERS Safety Report 10903753 (Version 1)
Quarter: 2015Q1

REPORT INFORMATION
  Report Type: Other
  Country: LV (occurrence: LV)
  Receive Date: 20150311
  Receipt Date: 20150311
  Transmission Date: 20150721
  Serious: Yes (Hospitalization)
  Sender: FDA-Public Use
  Company Number: LV-ENDO PHARMACEUTICALS INC-2015-000030

PATIENT
  Age: 52 Year
  Sex: Male

DRUGS (2)
  1. ANTIPSYCHOTICS [Suspect]
     Active Substance: UNSPECIFIED INGREDIENT
     Indication: SCHIZOPHRENIA, PARANOID TYPE
     Route: 065
  2. TRIHEXYPHENIDYL HYDROCHLORIDE TABLETS [Suspect]
     Active Substance: TRIHEXYPHENIDYL HYDROCHLORIDE
     Indication: SCHIZOPHRENIA, PARANOID TYPE
     Route: 065

REACTIONS (2)
  - Hypochloraemia [Recovered/Resolved]
  - Inappropriate antidiuretic hormone secretion [Recovered/Resolved]
